FAERS Safety Report 16798847 (Version 2)
Quarter: 2019Q3

REPORT INFORMATION
  Report Type: Spontaneous
  Country: NL (occurrence: NL)
  Receive Date: 20190912
  Receipt Date: 20190912
  Transmission Date: 20191005
  Serious: Yes (Other)
  Sender: FDA-Public Use
  Company Number: NL-PFIZER INC-2019373994

PATIENT
  Age: 61 Year
  Sex: Female

DRUGS (6)
  1. LANREOTIDE [Concomitant]
     Active Substance: LANREOTIDE
     Indication: PROLACTIN-PRODUCING PITUITARY TUMOUR
     Dosage: 120 MG, MONTHLY
     Route: 065
  2. PASIREOTIDE. [Concomitant]
     Active Substance: PASIREOTIDE
     Indication: PROLACTIN-PRODUCING PITUITARY TUMOUR
     Dosage: 60 MG, MONTHLY
     Route: 065
  3. CABERGOLINE. [Suspect]
     Active Substance: CABERGOLINE
     Indication: PROLACTIN-PRODUCING PITUITARY TUMOUR
     Dosage: 0.5 MG, WEEKLY (STARTING DOSE: 0.5 MG/WEEK)
     Route: 065
  4. CABERGOLINE. [Suspect]
     Active Substance: CABERGOLINE
     Dosage: 3 MG, WEEKLY
     Route: 065
  5. CABERGOLINE. [Suspect]
     Active Substance: CABERGOLINE
     Dosage: 7 MG, WEEKLY
     Route: 065
  6. CABERGOLINE. [Suspect]
     Active Substance: CABERGOLINE
     Dosage: 5 MG, WEEKLY (5.0 MG/ WEEK FOR 3 MONTHS)
     Route: 065

REACTIONS (1)
  - Heart valve incompetence [Unknown]
